FAERS Safety Report 18237656 (Version 5)
Quarter: 2021Q1

REPORT INFORMATION
  Report Type: Spontaneous
  Country: US (occurrence: US)
  Receive Date: 20200907
  Receipt Date: 20210317
  Transmission Date: 20210419
  Serious: Yes (Other)
  Sender: FDA-Public Use
  Company Number: US-PFIZER INC-2020318012

PATIENT
  Age: 70 Year
  Sex: Female
  Weight: 66.21 kg

DRUGS (3)
  1. SULFASALAZINE. [Suspect]
     Active Substance: SULFASALAZINE
     Dosage: 1000 MG, 2X/DAY
     Route: 048
  2. SULFASALAZINE. [Suspect]
     Active Substance: SULFASALAZINE
     Indication: COLITIS ULCERATIVE
     Dosage: 500 MG
     Dates: start: 20160321, end: 20200827
  3. SULFASALAZINE. [Suspect]
     Active Substance: SULFASALAZINE
     Dosage: 500 MG

REACTIONS (14)
  - Abdominal distension [Unknown]
  - Flatulence [Unknown]
  - Fatigue [Unknown]
  - Aortic valve incompetence [Unknown]
  - Defaecation disorder [Unknown]
  - Anorectal disorder [Unknown]
  - Epistaxis [Unknown]
  - Anaemia [Unknown]
  - Asthenia [Unknown]
  - Neoplasm malignant [Unknown]
  - Peripheral swelling [Unknown]
  - Haemorrhage [Unknown]
  - Pain [Unknown]
  - Hypoaesthesia [Unknown]
